FAERS Safety Report 9085646 (Version 1)
Quarter: 2013Q1

REPORT INFORMATION
  Report Type: Spontaneous
  Country: PT (occurrence: PT)
  Receive Date: 20130130
  Receipt Date: 20130130
  Transmission Date: 20140127
  Serious: Yes (Life-Threatening, Other)
  Sender: FDA-Public Use
  Company Number: PHHY2013PT007172

PATIENT
  Age: 22 Year
  Sex: Male
  Weight: 70 kg

DRUGS (5)
  1. TEGRETOL CR [Suspect]
     Indication: TRIGEMINAL NEURALGIA
     Dosage: 2 DF, BID
     Route: 048
     Dates: start: 20060919
  2. PARACETAMOL [Concomitant]
     Indication: PAIN
     Dosage: 500 MG, QD
     Route: 048
     Dates: start: 200310
  3. BEN-U-RON [Concomitant]
     Indication: PAIN
     Dosage: 1 G, QD
     Route: 048
     Dates: start: 200310
  4. DAFALGAN [Concomitant]
     Indication: PAIN
     Dosage: 1 G, UNK
     Route: 048
     Dates: start: 200310
  5. ASPIRINA [Concomitant]
     Indication: PAIN
     Route: 048
     Dates: start: 200310

REACTIONS (12)
  - Panic disorder [Unknown]
  - Fear [Unknown]
  - Abnormal behaviour [Unknown]
  - Pain [Unknown]
  - Disorientation [Unknown]
  - Confusional state [Unknown]
  - Trigeminal neuralgia [Unknown]
  - Condition aggravated [Unknown]
  - Agitation [Unknown]
  - Toxicity to various agents [Unknown]
  - Aggression [Unknown]
  - Drug ineffective [Unknown]
